FAERS Safety Report 9233259 (Version 1)
Quarter: 2013Q2

REPORT INFORMATION
  Report Type: Spontaneous
  Country: US (occurrence: None)
  Receive Date: 20130415
  Receipt Date: 20130415
  Transmission Date: 20140414
  Serious: Yes (Hospitalization)
  Sender: FDA-Public Use
  Company Number: None

PATIENT
  Age: 78 Year
  Sex: Male
  Weight: 97.7 kg

DRUGS (2)
  1. TEMSIROLIMUS [Suspect]
  2. BORTEZOMIB [Suspect]

REACTIONS (3)
  - Febrile neutropenia [None]
  - Pseudomonal sepsis [None]
  - Bacteraemia [None]
